FAERS Safety Report 13961935 (Version 1)
Quarter: 2017Q3

REPORT INFORMATION
  Report Type: Spontaneous
  Country: US (occurrence: US)
  Receive Date: 20170912
  Receipt Date: 20170912
  Transmission Date: 20171128
  Serious: Yes (Hospitalization, Other)
  Sender: FDA-Public Use
  Company Number: US-MYLANLABS-2017M1056609

PATIENT
  Age: 29 Year
  Sex: Female

DRUGS (2)
  1. BENADRYL [Suspect]
     Active Substance: DIPHENHYDRAMINE HYDROCHLORIDE
     Indication: INTENTIONAL OVERDOSE
     Dosage: 50MG
     Route: 065
  2. EPINEPHRINE. [Suspect]
     Active Substance: EPINEPHRINE
     Indication: INTENTIONAL OVERDOSE
     Dosage: 1MG
     Route: 065

REACTIONS (6)
  - Suicide attempt [Recovering/Resolving]
  - Intentional overdose [Recovering/Resolving]
  - Incorrect route of drug administration [Recovering/Resolving]
  - Pulmonary oedema [Recovered/Resolved]
  - Left ventricular dysfunction [Recovering/Resolving]
  - Myocardial ischaemia [Recovered/Resolved]
